FAERS Safety Report 5890186-4 (Version None)
Quarter: 2008Q3

REPORT INFORMATION
  Report Type: 
  Country: None (occurrence: None)
  Receive Date: 20080919
  Receipt Date: 20080909
  Transmission Date: 20090109
  Serious: Yes (Hospitalization, Other)
  Sender: FDA-Public Use
  Company Number: US-PFIZER INC-2008075839

PATIENT
  Sex: Female
  Weight: 58.1 kg

DRUGS (10)
  1. LYRICA [Suspect]
  2. CELEBREX [Concomitant]
  3. DICLOFENAC [Concomitant]
  4. ZOCOR [Concomitant]
  5. SEREVENT [Concomitant]
  6. CLARITIN [Concomitant]
     Dosage: DAILY DOSE:10MG
  7. HYDROCHLOROTHIAZIDE [Concomitant]
     Dosage: DAILY DOSE:25MG
  8. POTASSIUM CHLORIDE [Concomitant]
     Dosage: DAILY DOSE:10MEQ
  9. CALCIUM WITH VITAMIN D [Concomitant]
  10. OMEPRAZOLE [Concomitant]
     Dosage: DAILY DOSE:40MG

REACTIONS (2)
  - INTERNATIONAL NORMALISED RATIO INCREASED [None]
  - KNEE ARTHROPLASTY [None]
